FAERS Safety Report 10156492 (Version 1)
Quarter: 2014Q2

REPORT INFORMATION
  Report Type: Spontaneous
  Country: CA (occurrence: CA)
  Receive Date: 20140507
  Receipt Date: 20140507
  Transmission Date: 20141212
  Serious: Yes (Death)
  Sender: FDA-Public Use
  Company Number: CA-ROCHE-1391802

PATIENT
  Age: 53 Year
  Sex: Male
  Weight: 73 kg

DRUGS (14)
  1. CLONAZEPAM [Suspect]
     Indication: PRODUCT USED FOR UNKNOWN INDICATION
     Route: 048
  2. ELAVIL (CANADA) [Suspect]
     Indication: PRODUCT USED FOR UNKNOWN INDICATION
     Route: 065
  3. TRAZODONE [Suspect]
     Indication: PRODUCT USED FOR UNKNOWN INDICATION
     Route: 048
  4. VENLAFAXINE ER [Suspect]
     Indication: PRODUCT USED FOR UNKNOWN INDICATION
     Route: 048
  5. DICLOFENAC [Concomitant]
  6. ESOMEPRAZOLE [Concomitant]
  7. GABAPENTIN [Concomitant]
  8. HYDROXYZINE [Concomitant]
  9. KALETRA [Concomitant]
  10. OXYBUTYNIN [Concomitant]
  11. PANTOPRAZOLE [Concomitant]
  12. RISPERIDONE [Concomitant]
  13. TRUVADA [Concomitant]
     Route: 065
  14. VIAGRA [Concomitant]
     Route: 065

REACTIONS (1)
  - Overdose [Fatal]
